FAERS Safety Report 7080585-X (Version None)
Quarter: 2010Q4

REPORT INFORMATION
  Report Type: 
  Country: None (occurrence: None)
  Receive Date: 20101103
  Receipt Date: 20101027
  Transmission Date: 20110411
  Serious: Yes (Hospitalization, Other)
  Sender: FDA-Public Use
  Company Number: BR-ABBOTT-10P-020-0681975-00

PATIENT
  Sex: Female
  Weight: 53 kg

DRUGS (8)
  1. HUMIRA [Suspect]
     Indication: ANKYLOSING SPONDYLITIS
     Route: 058
     Dates: start: 20091101, end: 20100924
  2. MELOXICAM [Concomitant]
     Indication: PAIN
     Route: 048
  3. METHOTREXATE [Concomitant]
     Indication: ANKYLOSING SPONDYLITIS
     Dosage: 1ML EVERY WEEK
     Route: 030
  4. FOLIC ACID [Concomitant]
     Indication: ANKYLOSING SPONDYLITIS
     Route: 048
  5. DIAZEPAM [Concomitant]
     Indication: INSOMNIA
     Route: 048
  6. NEOZINE [Concomitant]
     Indication: INSOMNIA
     Route: 048
  7. AMITRIPTYLINE HCL [Concomitant]
     Indication: INSOMNIA
     Route: 048
  8. COMBINED FORMULA [Concomitant]
     Indication: PAIN
     Dosage: COMBINED FORMULA - CODEINE60MG/ PARACETAMOL 500MG
     Route: 048

REACTIONS (13)
  - ARTHRALGIA [None]
  - BONE PAIN [None]
  - DECREASED APPETITE [None]
  - HAEMORRHAGIC CYST [None]
  - LEIOMYOMA [None]
  - NIGHT SWEATS [None]
  - OVARIAN INFECTION [None]
  - PYREXIA [None]
  - TUBERCULOSIS [None]
  - URINARY TRACT INFECTION [None]
  - UTERINE INFECTION [None]
  - VOMITING [None]
  - WEIGHT DECREASED [None]
